FAERS Safety Report 6841234-6 (Version None)
Quarter: 2010Q3

REPORT INFORMATION
  Report Type: 
  Country: None (occurrence: None)
  Receive Date: 20100714
  Receipt Date: 20070630
  Transmission Date: 20110219
  Serious: No
  Sender: FDA-Public Use
  Company Number: US-PFIZER INC-2007054216

PATIENT
  Sex: Female
  Weight: 61.363 kg

DRUGS (6)
  1. CHANTIX [Suspect]
     Indication: SMOKING CESSATION THERAPY
     Dates: start: 20070629
  2. MULTI-VITAMINS [Concomitant]
  3. ATENOLOL [Concomitant]
  4. ALL OTHER THERAPEUTIC PRODUCTS [Concomitant]
  5. DARVOCET [Concomitant]
  6. XANAX [Concomitant]

REACTIONS (2)
  - ANXIETY [None]
  - FEELING ABNORMAL [None]
